FAERS Safety Report 7544121-3 (Version None)
Quarter: 2011Q2

REPORT INFORMATION
  Report Type: 
  Country: None (occurrence: None)
  Receive Date: 20110613
  Receipt Date: 20051027
  Transmission Date: 20111010
  Serious: Yes (Hospitalization)
  Sender: FDA-Public Use
  Company Number: PHNR2005AU01505

PATIENT
  Sex: Female

DRUGS (1)
  1. CLOZAPINE [Suspect]
     Dosage: 0 - 500 MG/DAY
     Dates: start: 19940803, end: 20051010

REACTIONS (3)
  - NEUTROPENIA [None]
  - EPSTEIN-BARR VIRUS INFECTION [None]
  - INFECTIOUS MONONUCLEOSIS [None]
